FAERS Safety Report 5082139-3 (Version None)
Quarter: 2006Q3

REPORT INFORMATION
  Report Type: 
  Country: None (occurrence: None)
  Receive Date: 20060817
  Receipt Date: 20060629
  Transmission Date: 20061208
  Serious: Yes (Hospitalization)
  Sender: FDA-Public Use
  Company Number: 2006UW13679

PATIENT
  Age: 49 Year
  Sex: Male
  Weight: 131.5 kg

DRUGS (1)
  1. PRILOSEC [Suspect]
     Indication: GASTROOESOPHAGEAL REFLUX DISEASE
     Route: 048
     Dates: start: 20060609

REACTIONS (2)
  - MUSCLE SPASMS [None]
  - PULMONARY EMBOLISM [None]
